FAERS Safety Report 4522064-7 (Version None)
Quarter: 2004Q4

REPORT INFORMATION
  Report Type: 
  Country: None (occurrence: None)
  Receive Date: 20041209
  Receipt Date: 20041022
  Transmission Date: 20050328
  Serious: Yes (Death, Life-Threatening, Disabling, Other)
  Sender: FDA-Public Use
  Company Number: US-MERCK-0410USA03578

PATIENT
  Age: 70 Year
  Sex: Female

DRUGS (3)
  1. INVANZ [Suspect]
     Indication: OSTEOMYELITIS
     Route: 042
     Dates: start: 20040929, end: 20041022
  2. COLACE [Concomitant]
     Route: 065
  3. VANCOMYCIN [Concomitant]
     Route: 042
     Dates: start: 20040929, end: 20041022

REACTIONS (2)
  - BLOOD CREATININE INCREASED [None]
  - DEATH [None]
